FAERS Safety Report 5584305-7 (Version None)
Quarter: 2008Q1

REPORT INFORMATION
  Report Type: 
  Country: None (occurrence: None)
  Receive Date: 20080108
  Receipt Date: 20080103
  Transmission Date: 20080703
  Serious: Yes (Hospitalization)
  Sender: FDA-Public Use
  Company Number: JP-AVENTIS-200810144GDDC

PATIENT
  Age: 73 Year
  Sex: Female

DRUGS (1)
  1. DESMOPRESSIN [Suspect]
     Indication: ENURESIS
     Dates: start: 20071116

REACTIONS (1)
  - INTESTINAL ISCHAEMIA [None]
